FAERS Safety Report 23521432 (Version 3)
Quarter: 2024Q2

REPORT INFORMATION
  Report Type: Spontaneous
  Country: US (occurrence: US)
  Receive Date: 20240214
  Receipt Date: 20240513
  Transmission Date: 20240716
  Serious: No
  Sender: FDA-Public Use
  Company Number: US-862174955-ML2024-00548

PATIENT
  Age: 80 Year
  Sex: Male

DRUGS (1)
  1. DORZOLAMIDE HYDROCHLORIDE OPHTHALMIC SOLUTION [Suspect]
     Active Substance: DORZOLAMIDE HYDROCHLORIDE
     Indication: Product used for unknown indication
     Dosage: ONE DROPS IN LEFT EYE; THREE TIMES A DAY
     Route: 047
     Dates: start: 20231219

REACTIONS (3)
  - Foreign body in eye [Unknown]
  - No adverse event [Unknown]
  - Product packaging quantity issue [Unknown]
